FAERS Safety Report 16887604 (Version 1)
Quarter: 2019Q4

REPORT INFORMATION
  Report Type: Report from Study
  Country: US (occurrence: US)
  Receive Date: 20191005
  Receipt Date: 20191005
  Transmission Date: 20200122
  Serious: Yes (Death)
  Sender: FDA-Public Use
  Company Number: US-ROCHE-2432349

PATIENT
  Sex: Male

DRUGS (2)
  1. AVASTIN [Suspect]
     Active Substance: BEVACIZUMAB
     Indication: COLON CANCER
     Dosage: INFUSE 517MG INTRAVENOUSLY EVERY 14 DAY(S)
     Route: 042
  2. AVASTIN [Suspect]
     Active Substance: BEVACIZUMAB
     Indication: IRON DEFICIENCY ANAEMIA
     Dosage: INFUSE 517 MG INTRAVENOUSLY EVERY 14 DAY(S)
     Route: 042

REACTIONS (1)
  - Death [Fatal]
